FAERS Safety Report 22148461 (Version 2)
Quarter: 2023Q1

REPORT INFORMATION
  Report Type: Report from Study
  Country: US (occurrence: US)
  Receive Date: 20230328
  Receipt Date: 20230331
  Transmission Date: 20230417
  Serious: No
  Sender: FDA-Public Use
  Company Number: US-SA-SAC20230324000557

PATIENT
  Age: 62 Year
  Sex: Female

DRUGS (6)
  1. DUPIXENT [Suspect]
     Active Substance: DUPILUMAB
     Indication: Dermatitis atopic
     Dosage: 300 MG, QOW
     Route: 058
     Dates: start: 20221223
  2. DUPIXENT [Suspect]
     Active Substance: DUPILUMAB
     Dosage: 600 MG, 1X
     Route: 058
     Dates: start: 20230111, end: 20230111
  3. DUPIXENT [Suspect]
     Active Substance: DUPILUMAB
     Dosage: 300 MG, QOW
     Route: 058
     Dates: start: 202301
  4. METHOTREXATE [Concomitant]
     Active Substance: METHOTREXATE
     Dosage: QW (EVERY MONDAY)
  5. FOLIC ACID [Concomitant]
     Active Substance: FOLIC ACID
     Dosage: EVERY DAY EXCEPT MONDAY
  6. CLOBETASOL [Concomitant]
     Active Substance: CLOBETASOL
     Dosage: ONCE A DAY
     Route: 061

REACTIONS (6)
  - Bronchitis [Recovered/Resolved]
  - Dandruff [Recovered/Resolved]
  - Sleep deficit [Recovered/Resolved]
  - Staphylococcal skin infection [Recovered/Resolved]
  - Productive cough [Recovered/Resolved]
  - Pruritus [Recovered/Resolved]

NARRATIVE: CASE EVENT DATE: 20230101
